FAERS Safety Report 5937523-X (Version None)
Quarter: 2008Q4

REPORT INFORMATION
  Report Type: 
  Country: None (occurrence: None)
  Receive Date: 20081031
  Receipt Date: 20081020
  Transmission Date: 20090506
  Serious: Yes (Other)
  Sender: FDA-Public Use
  Company Number: GB-JNJFOC-20080703410

PATIENT
  Age: 59 Year
  Sex: Male

DRUGS (7)
  1. REMICADE [Suspect]
     Route: 042
  2. REMICADE [Suspect]
     Route: 042
  3. REMICADE [Suspect]
     Indication: PYODERMA GANGRENOSUM
     Route: 042
  4. PREDNISONE [Concomitant]
  5. AMLODIPINE [Concomitant]
  6. ACTINEL [Concomitant]
  7. LANSOPRAZOLE [Concomitant]

REACTIONS (3)
  - ANAEMIA [None]
  - NEUTROPHILIA [None]
  - PYOGENIC GRANULOMA [None]
